FAERS Safety Report 8011760-5 (Version None)
Quarter: 2011Q4

REPORT INFORMATION
  Report Type: 
  Country: None (occurrence: None)
  Receive Date: 20111228
  Receipt Date: 20111220
  Transmission Date: 20120403
  Serious: Yes (Other)
  Sender: FDA-Public Use
  Company Number: PHHY2011NZ110594

PATIENT
  Sex: Female
  Weight: 95.5 kg

DRUGS (1)
  1. DOCETAXEL [Suspect]
     Indication: CHEMOTHERAPY
     Dosage: 200 MG 3 WEEKLY
     Dates: start: 20111115

REACTIONS (2)
  - INJECTION SITE SCAR [None]
  - INJECTION SITE PAIN [None]
